FAERS Safety Report 17276752 (Version 2)
Quarter: 2022Q1

REPORT INFORMATION
  Report Type: Spontaneous
  Country: US (occurrence: US)
  Receive Date: 20200116
  Receipt Date: 20220302
  Transmission Date: 20220423
  Serious: No
  Sender: FDA-Public Use
  Company Number: US-NOVARTISTESTPH-NVSC2020US007650

PATIENT
  Age: 70 Year
  Sex: Male

DRUGS (2)
  1. BEOVU [Suspect]
     Active Substance: BROLUCIZUMAB-DBLL
     Indication: Product used for unknown indication
     Dosage: 6 MG, ONCE/SINGLE
     Route: 047
     Dates: start: 20191201, end: 20191201
  2. BEOVU [Suspect]
     Active Substance: BROLUCIZUMAB-DBLL
     Dosage: 6 MG, ONCE/SINGLE
     Route: 047
     Dates: start: 20191215, end: 20191215

REACTIONS (1)
  - Eye inflammation [Recovering/Resolving]

NARRATIVE: CASE EVENT DATE: 20191201
